FAERS Safety Report 5947332-3 (Version None)
Quarter: 2008Q4

REPORT INFORMATION
  Report Type: 
  Country: None (occurrence: None)
  Receive Date: 20081110
  Receipt Date: 20081029
  Transmission Date: 20090506
  Serious: Yes (Other)
  Sender: FDA-Public Use
  Company Number: BR-PFIZER INC-2008092081

PATIENT
  Sex: Male
  Weight: 90 kg

DRUGS (2)
  1. DOSTINEX [Suspect]
     Indication: PITUITARY TUMOUR
     Route: 048
     Dates: start: 20080501
  2. SIMVASTATIN [Concomitant]

REACTIONS (7)
  - CONSTIPATION [None]
  - DIZZINESS [None]
  - HEADACHE [None]
  - PAIN IN EXTREMITY [None]
  - RECTAL HAEMORRHAGE [None]
  - SOMNOLENCE [None]
  - TREMOR [None]
